FAERS Safety Report 26074781 (Version 2)
Quarter: 2025Q4

REPORT INFORMATION
  Report Type: Spontaneous
  Country: EU (occurrence: EU)
  Receive Date: 20251121
  Receipt Date: 20251127
  Transmission Date: 20260117
  Serious: Yes (Death, Hospitalization)
  Sender: ABBVIE
  Company Number: EU-ABBVIE-6559501

PATIENT
  Age: 57 Year
  Sex: Female

DRUGS (1)
  1. RINVOQ [Suspect]
     Active Substance: UPADACITINIB
     Indication: Crohn^s disease
     Dosage: PROLONGED RELEASE TABLETS
     Route: 048
     Dates: start: 20251112, end: 20251120

REACTIONS (2)
  - Pulmonary embolism [Fatal]
  - Hospitalisation [Recovered/Resolved]
